FAERS Safety Report 24582185 (Version 2)
Quarter: 2025Q3

REPORT INFORMATION
  Report Type: Report from Study
  Country: US (occurrence: US)
  Receive Date: 20241105
  Receipt Date: 20250903
  Transmission Date: 20251021
  Serious: Yes (Other)
  Sender: ABBVIE
  Company Number: US-ABBVIE-5987535

PATIENT
  Sex: Female

DRUGS (1)
  1. SKYRIZI [Suspect]
     Active Substance: RISANKIZUMAB-RZAA
     Indication: Psoriasis
     Route: 058
     Dates: start: 20230106

REACTIONS (3)
  - Atrial fibrillation [Not Recovered/Not Resolved]
  - Injection site haemorrhage [Recovered/Resolved]
  - Meniscus operation [Recovering/Resolving]

NARRATIVE: CASE EVENT DATE: 20250630
